FAERS Safety Report 5495404-2 (Version None)
Quarter: 2007Q4

REPORT INFORMATION
  Report Type: 
  Country: None (occurrence: None)
  Receive Date: 20071024
  Receipt Date: 20071015
  Transmission Date: 20080405
  Serious: Yes (Other)
  Sender: FDA-Public Use
  Company Number: US-GILEAD-2007-0013859

PATIENT
  Age: 24 Year
  Sex: Male

DRUGS (8)
  1. VIREAD [Suspect]
  2. ETIBI [Suspect]
  3. ZITHROMAX [Suspect]
  4. REYATAZ [Suspect]
  5. VIDEX [Suspect]
  6. LAMIVUDINE [Suspect]
  7. KALETRA [Suspect]
  8. BACTRIM [Suspect]

REACTIONS (7)
  - ABDOMINAL PAIN [None]
  - GASTRITIS [None]
  - GASTROINTESTINAL MOTILITY DISORDER [None]
  - HEPATOMEGALY [None]
  - NAUSEA [None]
  - VOMITING [None]
  - WEIGHT DECREASED [None]
